FAERS Safety Report 9351364 (Version 2)
Quarter: 2013Q4

REPORT INFORMATION
  Report Type: Spontaneous
  Country: GB (occurrence: GB)
  Receive Date: 20130617
  Receipt Date: 20131017
  Transmission Date: 20140711
  Serious: Yes (Hospitalization, Other)
  Sender: FDA-Public Use
  Company Number: GB-VERTEX PHARMACEUTICALS INC-2013-007127

PATIENT
  Age: 34 Year
  Sex: Female
  Weight: 57.7 kg

DRUGS (4)
  1. INCIVO [Suspect]
     Indication: CHRONIC HEPATITIS C
     Dosage: 750 MG, UNK
     Route: 048
     Dates: start: 20130129, end: 20130328
  2. RIBAVIRIN [Suspect]
     Indication: VIRAL HEPATITIS CARRIER
     Dosage: UNK
     Route: 048
     Dates: start: 20130101, end: 20130301
  3. PEGINTERFERON ALFA 2A [Suspect]
     Indication: CHRONIC HEPATITIS C
     Dosage: UNK
     Route: 065
  4. TEMAZEPAM [Concomitant]
     Dosage: UNK
     Route: 065

REACTIONS (6)
  - Mucosal inflammation [Recovered/Resolved]
  - Malaise [Recovered/Resolved]
  - Chills [Recovered/Resolved]
  - Fatigue [Recovered/Resolved]
  - Rash generalised [Recovered/Resolved]
  - Drug reaction with eosinophilia and systemic symptoms [Recovered/Resolved]
